FAERS Safety Report 7727374-8 (Version None)
Quarter: 2011Q3

REPORT INFORMATION
  Report Type: 
  Country: None (occurrence: None)
  Receive Date: 20110902
  Receipt Date: 20110824
  Transmission Date: 20111222
  Serious: Yes (Hospitalization)
  Sender: FDA-Public Use
  Company Number: PHHY2011JP75878

PATIENT
  Age: 23 Year
  Sex: Male

DRUGS (4)
  1. INFLIXIMAB [Concomitant]
     Indication: CROHN'S DISEASE
     Dosage: 200 MG
  2. PREDNISOLONE [Concomitant]
     Dosage: 40 MG, DAILY
  3. COTRIM [Suspect]
     Indication: NOCARDIOSIS
     Dosage: 240/1200 MG, DAILY
  4. PREDNISOLONE [Concomitant]
     Dosage: 50 MG, DAILY

REACTIONS (3)
  - NAUSEA [None]
  - FATIGUE [None]
  - RHABDOMYOLYSIS [None]
